FAERS Safety Report 19644006 (Version 1)
Quarter: 2021Q3

REPORT INFORMATION
  Report Type: Spontaneous
  Country: US (occurrence: US)
  Receive Date: 20210731
  Receipt Date: 20210731
  Transmission Date: 20211014
  Serious: No
  Sender: FDA-Public Use
  Company Number: NVSC2021US166102

PATIENT
  Age: 67 Year
  Sex: Male
  Weight: 165 kg

DRUGS (1)
  1. METFORMIN [Suspect]
     Active Substance: METFORMIN HYDROCHLORIDE
     Indication: INFECTED NEOPLASM
     Dosage: UNK
     Route: 065

REACTIONS (2)
  - Positron emission tomogram [Unknown]
  - Neoplasm [Unknown]

NARRATIVE: CASE EVENT DATE: 202103
